FAERS Safety Report 6520260-0 (Version None)
Quarter: 2009Q4

REPORT INFORMATION
  Report Type: 
  Country: None (occurrence: None)
  Receive Date: 20091229
  Receipt Date: 20091221
  Transmission Date: 20100525
  Serious: Yes (Hospitalization)
  Sender: FDA-Public Use
  Company Number: AT-ASTRAZENECA-2009SE30232

PATIENT
  Age: 791 Month
  Sex: Female
  Weight: 81 kg

DRUGS (2)
  1. ARIMIDEX [Suspect]
     Indication: BREAST CANCER
     Route: 048
     Dates: start: 20050907, end: 20070116
  2. LANSOPRAZOLE [Concomitant]
     Indication: HIATUS HERNIA
     Route: 048

REACTIONS (2)
  - POSTMENOPAUSAL HAEMORRHAGE [None]
  - UTERINE POLYP [None]
